FAERS Safety Report 25418060 (Version 1)
Quarter: 2025Q2

REPORT INFORMATION
  Report Type: Spontaneous
  Country: BE (occurrence: BE)
  Receive Date: 20250610
  Receipt Date: 20250610
  Transmission Date: 20250717
  Serious: Yes (Death)
  Sender: ASTELLAS
  Company Number: BE-ASTELLAS-2025-AER-021894

PATIENT
  Sex: Male

DRUGS (1)
  1. XTANDI [Suspect]
     Active Substance: ENZALUTAMIDE
     Indication: Desmoplastic small round cell tumour
     Route: 065
     Dates: start: 20250424

REACTIONS (2)
  - Malignant neoplasm progression [Fatal]
  - Off label use [Unknown]

NARRATIVE: CASE EVENT DATE: 20250424
